FAERS Safety Report 11838159 (Version 1)
Quarter: 2015Q4

REPORT INFORMATION
  Report Type: Report from Study
  Country: CA (occurrence: CA)
  Receive Date: 20151215
  Receipt Date: 20151215
  Transmission Date: 20160305
  Serious: Yes (Hospitalization)
  Sender: FDA-Public Use
  Company Number: CA-KADMON PHARMACEUTICALS, LLC-KAD201507-002410

PATIENT
  Sex: Male
  Weight: 82 kg

DRUGS (15)
  1. FUROSEMIDE. [Concomitant]
     Active Substance: FUROSEMIDE
     Dosage: TABLET
  2. RABEPRAZOLE [Concomitant]
     Active Substance: RABEPRAZOLE
  3. ADVAIR (SERETIDE) [Concomitant]
  4. SPIRONOLACTONE. [Concomitant]
     Active Substance: SPIRONOLACTONE
  5. VITAMIN D [Concomitant]
     Active Substance: CHOLECALCIFEROL
  6. SPIRONOLACTONE. [Concomitant]
     Active Substance: SPIRONOLACTONE
     Dosage: TABLET
  7. RIBAVIRIN. [Suspect]
     Active Substance: RIBAVIRIN
     Indication: CHRONIC HEPATITIS C
     Dosage: TABLET
     Route: 048
     Dates: start: 20150225, end: 201503
  8. RIBAVIRIN. [Suspect]
     Active Substance: RIBAVIRIN
     Route: 048
     Dates: start: 201503
  9. HOLKIRA PAK [Suspect]
     Active Substance: DASABUVIR\OMBITASVIR\PARITAPREVIR\RITONAVIR
     Indication: CHRONIC HEPATITIS C
     Dosage: 12.5/75/50 MG TABLETS ONCE DAILY AND ONE DASABUVIR 250 MG TABLET TWICE DAILY
     Route: 048
     Dates: start: 20150225
  10. TINZAPARIN [Concomitant]
     Active Substance: TINZAPARIN
     Dosage: INJECTION
     Route: 058
  11. LACTULOSE. [Concomitant]
     Active Substance: LACTULOSE
  12. CENTRUM [Concomitant]
     Active Substance: VITAMINS
  13. SALBUTAMOL [Concomitant]
     Active Substance: ALBUTEROL
  14. VENTOLIN [Concomitant]
     Active Substance: ALBUTEROL SULFATE
  15. WARFARIN [Concomitant]
     Active Substance: WARFARIN
     Dosage: INJECTION

REACTIONS (3)
  - Encephalopathy [Unknown]
  - Disorientation [Unknown]
  - Haemoglobin decreased [Unknown]
